FAERS Safety Report 23785757 (Version 2)
Quarter: 2024Q2

REPORT INFORMATION
  Report Type: Report from Study
  Country: US (occurrence: US)
  Receive Date: 20240425
  Receipt Date: 20240502
  Transmission Date: 20240715
  Serious: Yes (Hospitalization)
  Sender: FDA-Public Use
  Company Number: US-BEIGENE-BGN-2024-005624

PATIENT

DRUGS (2)
  1. BRUKINSA [Suspect]
     Active Substance: ZANUBRUTINIB
     Indication: Chronic lymphocytic leukaemia
     Dosage: 320 MILLIGRAM, BID
     Route: 048
     Dates: start: 20230601
  2. BRUKINSA [Suspect]
     Active Substance: ZANUBRUTINIB
     Dosage: 320 MILLIGRAM, DAILY
     Route: 048
     Dates: start: 20230601

REACTIONS (6)
  - Cellulitis [Recovering/Resolving]
  - Body temperature increased [Unknown]
  - Heart rate increased [Unknown]
  - Intestinal perforation [Recovering/Resolving]
  - Abnormal behaviour [Unknown]
  - Overdose [Unknown]
